FAERS Safety Report 24576550 (Version 2)
Quarter: 2024Q4

REPORT INFORMATION
  Report Type: Report from Study
  Country: DE (occurrence: DE)
  Receive Date: 20241104
  Receipt Date: 20241121
  Transmission Date: 20250115
  Serious: Yes (Death)
  Sender: TEVA
  Company Number: DE-TEVA-VS-3260452

PATIENT
  Age: 54 Year

DRUGS (3)
  1. CYCLOSPORINE [Suspect]
     Active Substance: CYCLOSPORINE
     Indication: Prophylaxis against graft versus host disease
     Route: 065
  2. MYCOPHENOLATE MOFETIL [Suspect]
     Active Substance: MYCOPHENOLATE MOFETIL
     Indication: Prophylaxis against graft versus host disease
     Route: 065
  3. FLUDARABINE [Concomitant]
     Active Substance: FLUDARABINE PHOSPHATE
     Indication: Mantle cell lymphoma
     Route: 065

REACTIONS (1)
  - Drug ineffective [Fatal]
